FAERS Safety Report 4731571-3 (Version None)
Quarter: 2005Q3

REPORT INFORMATION
  Report Type: 
  Country: None (occurrence: None)
  Receive Date: 20050801
  Receipt Date: 20050801
  Transmission Date: 20060218
  Serious: Yes (Other)
  Sender: FDA-Public Use
  Company Number: None

PATIENT
  Sex: Female
  Weight: 68.4932 kg

DRUGS (5)
  1. RAPTIVA [Suspect]
     Indication: PSORIASIS
     Dosage: 0.7 ML SC WEEKLY
     Route: 058
     Dates: start: 20040124
  2. RAPTIVA [Suspect]
     Indication: PSORIASIS
     Dosage: 0.7 ML SC WEEKLY
     Route: 058
     Dates: start: 20040407
  3. SULFASALAZINE [Concomitant]
  4. LEVOXYL [Concomitant]
  5. ALLEGRA [Concomitant]

REACTIONS (3)
  - ANAEMIA [None]
  - HEPATOMEGALY [None]
  - WEIGHT DECREASED [None]
